FAERS Safety Report 9260755 (Version 3)
Quarter: 2013Q2

REPORT INFORMATION
  Report Type: Spontaneous
  Country: US (occurrence: US)
  Receive Date: 20130429
  Receipt Date: 20130626
  Transmission Date: 20140414
  Serious: Yes (Hospitalization)
  Sender: FDA-Public Use
  Company Number: US-MERCK-1304USA015267

PATIENT
  Age: 12 Year
  Sex: Female

DRUGS (5)
  1. SAPHRIS [Suspect]
     Indication: MAJOR DEPRESSION
     Dosage: 5 MG, BID
     Route: 060
     Dates: start: 20130307, end: 20130316
  2. ZOLOFT [Concomitant]
     Dosage: 100 MG, QD
     Route: 048
     Dates: start: 20121115
  3. LITHIUM CARBONATE [Concomitant]
     Dosage: 300 MG, BID
     Route: 048
     Dates: start: 20130307
  4. KLONOPIN [Concomitant]
     Indication: ANXIETY
     Dosage: 0.5 MG, Q8H PRN
     Route: 048
     Dates: start: 20130307, end: 20130410
  5. COGENTIN [Concomitant]
     Dosage: 0.5 MG, BID
     Route: 048
     Dates: start: 20130307, end: 20130410

REACTIONS (9)
  - Candida infection [Recovered/Resolved]
  - Nausea [Recovered/Resolved]
  - Diarrhoea [Recovered/Resolved]
  - White blood cell count abnormal [Recovered/Resolved]
  - Neutrophil count abnormal [Recovered/Resolved]
  - Dystonia [Recovered/Resolved]
  - Pyrexia [Recovered/Resolved]
  - Drug administered to patient of inappropriate age [Unknown]
  - Psychotic disorder [Unknown]
